FAERS Safety Report 25345796 (Version 2)
Quarter: 2025Q2

REPORT INFORMATION
  Report Type: Report from Study
  Country: IN (occurrence: IN)
  Receive Date: 20250522
  Receipt Date: 20250526
  Transmission Date: 20250716
  Serious: Yes (Other)
  Sender: NOVARTIS
  Company Number: IN-002147023-NVSC2025IN080942

PATIENT
  Age: 45 Year
  Sex: Female

DRUGS (1)
  1. RIBOCICLIB [Suspect]
     Active Substance: RIBOCICLIB
     Indication: Breast cancer metastatic
     Dosage: 400 MG, QD
     Route: 048
     Dates: start: 20250311

REACTIONS (20)
  - Cervical cord compression [Unknown]
  - Intraductal proliferative breast lesion [Unknown]
  - Hormone receptor positive HER2 negative breast cancer [Unknown]
  - Breast cancer stage IV [Unknown]
  - Metastases to lymph nodes [Unknown]
  - Metastases to bone [Unknown]
  - Metastases to muscle [Unknown]
  - Positron emission tomogram abnormal [Unknown]
  - Magnetic resonance imaging spinal abnormal [Unknown]
  - Vertebral lesion [Unknown]
  - Spinal stenosis [Unknown]
  - Bone disorder [Unknown]
  - Nodule [Unknown]
  - Intervertebral disc compression [Unknown]
  - Spinal disorder [Unknown]
  - Breast mass [Unknown]
  - Axillary mass [Unknown]
  - Bone lesion [Unknown]
  - Eastern Cooperative Oncology Group performance status abnormal [Unknown]
  - Lymphadenopathy [Unknown]

NARRATIVE: CASE EVENT DATE: 20250408
